FAERS Safety Report 4677147-8 (Version None)
Quarter: 2005Q2

REPORT INFORMATION
  Report Type: 
  Country: None (occurrence: None)
  Receive Date: 20050525
  Receipt Date: 20050525
  Transmission Date: 20051028
  Serious: No
  Sender: FDA-Public Use
  Company Number: None

PATIENT
  Sex: Male
  Weight: 128.2 kg

DRUGS (1)
  1. INTERRFERON ALFA-2B [Suspect]

REACTIONS (5)
  - AGITATION [None]
  - BREAST PAIN [None]
  - DECREASED APPETITE [None]
  - FEELING ABNORMAL [None]
  - INSOMNIA [None]
